FAERS Safety Report 5217762-6 (Version None)
Quarter: 2007Q1

REPORT INFORMATION
  Report Type: 
  Country: None (occurrence: None)
  Receive Date: 20061130
  Receipt Date: 20060814
  Transmission Date: 20070707
  Serious: Yes (Hospitalization, Other)
  Sender: FDA-Public Use
  Company Number: US200608003938

PATIENT
  Age: 50 Year
  Sex: Male
  Weight: 99.8 kg

DRUGS (1)
  1. ZYPREXA [Suspect]
     Indication: ANXIETY DISORDER
     Dosage: 10 MG
     Dates: start: 20030101

REACTIONS (5)
  - CEREBROVASCULAR ACCIDENT [None]
  - DIABETES MELLITUS [None]
  - GLYCOSURIA [None]
  - OBESITY [None]
  - WEIGHT DECREASED [None]
